FAERS Safety Report 5444278-4 (Version None)
Quarter: 2007Q3

REPORT INFORMATION
  Report Type: 
  Country: None (occurrence: None)
  Receive Date: 20070831
  Receipt Date: 20070820
  Transmission Date: 20080115
  Serious: Yes (Death, Life-Threatening, Hospitalization, Disabling, Other)
  Sender: FDA-Public Use
  Company Number: OSCN-UK-0702S-0095

PATIENT
  Age: 43 Year
  Sex: Male

DRUGS (1)
  1. OMNISCAN [Suspect]
     Indication: DRUG USE FOR UNKNOWN INDICATION
     Dosage: 45 ML, SINGLE DOSE, I.V.
     Route: 042
     Dates: start: 20020927, end: 20020927

REACTIONS (1)
  - NEPHROGENIC SYSTEMIC FIBROSIS [None]
